FAERS Safety Report 13356568 (Version 1)
Quarter: 2017Q1

REPORT INFORMATION
  Report Type: Report from Study
  Country: BR (occurrence: BR)
  Receive Date: 20170321
  Receipt Date: 20170321
  Transmission Date: 20170429
  Serious: Yes (Death, Hospitalization, Other)
  Sender: FDA-Public Use
  Company Number: PHHY2015BR081757

PATIENT
  Sex: Male
  Weight: 76 kg

DRUGS (2)
  1. EXJADE [Suspect]
     Active Substance: DEFERASIROX
     Indication: HAEMOCHROMATOSIS
     Dosage: 30 MG/KG, QD (5 TABLETS PER DAY)
     Route: 048
  2. EXJADE [Suspect]
     Active Substance: DEFERASIROX
     Indication: MYELODYSPLASTIC SYNDROME
     Dosage: 20 MG/KG, QD (3 TABLETS PER DAY)
     Route: 048

REACTIONS (12)
  - Gastric ulcer [Unknown]
  - Pneumonia [Fatal]
  - Pyrexia [Fatal]
  - Gastritis [Unknown]
  - Renal disorder [Unknown]
  - Vomiting [Unknown]
  - Diarrhoea [Unknown]
  - Septic shock [Fatal]
  - Loss of consciousness [Unknown]
  - Dizziness [Unknown]
  - Malaise [Recovering/Resolving]
  - Myelodysplastic syndrome [Fatal]
